FAERS Safety Report 6032272-4 (Version None)
Quarter: 2009Q1

REPORT INFORMATION
  Report Type: 
  Country: None (occurrence: None)
  Receive Date: 20090107
  Receipt Date: 20081227
  Transmission Date: 20090719
  Serious: Yes (Hospitalization, Other)
  Sender: FDA-Public Use
  Company Number: 2008SP019111

PATIENT
  Age: 51 Year
  Sex: Female

DRUGS (2)
  1. PEG-INTRON [Suspect]
     Indication: HEPATITIS C
     Dates: end: 20080816
  2. REBETOL [Suspect]
     Indication: HEPATITIS C
     Dosage: PO
     Route: 048
     Dates: start: 20080816

REACTIONS (11)
  - ALOPECIA [None]
  - ASTHENIA [None]
  - DRY SKIN [None]
  - FATIGUE [None]
  - HEADACHE [None]
  - INJECTION SITE PRURITUS [None]
  - INJECTION SITE RASH [None]
  - MUSCLE SPASMS [None]
  - NASOPHARYNGITIS [None]
  - PULMONARY EMBOLISM [None]
  - THROMBOSIS [None]
